FAERS Safety Report 5806917-5 (Version None)
Quarter: 2008Q3

REPORT INFORMATION
  Report Type: 
  Country: None (occurrence: None)
  Receive Date: 20080702
  Receipt Date: 20071016
  Transmission Date: 20090109
  Serious: Yes (Hospitalization)
  Sender: FDA-Public Use
  Company Number: PROG00207034514

PATIENT
  Age: 34 Year
  Sex: Female

DRUGS (8)
  1. PROMETRIUM [Suspect]
     Indication: IN VITRO FERTILISATION
     Dosage: DAILY DOSE
     Dates: start: 20060801, end: 20060101
  2. FEMTRACE [Suspect]
     Indication: IN VITRO FERTILISATION
     Dosage: DAILY ORAL DAILY DOSE
     Route: 048
     Dates: start: 20060801
  3. GANIRELIX ACETATE INJECTION [Suspect]
     Indication: IN VITRO FERTILISATION
     Dosage: DAILY SUBCUTANEOUS DAILY DOSE
     Route: 058
  4. FOLLISTIM [Suspect]
     Indication: IN VITRO FERTILISATION
     Dosage: DAILY SUBCUTANEOUS DAILY DOSE
     Route: 058
  5. MENOPUR [Suspect]
     Indication: IN VITRO FERTILISATION
     Dosage: DAILY SUBCUTANEOUS DAILY DOSE
     Route: 058
  6. CHORIOGONADOTROPIN (CHORIOGONADOTROPIN) [Suspect]
     Indication: IN VITRO FERTILISATION
     Dosage: DAILY SUBCUTANEOUS DAILY DOSE
     Route: 058
  7. PROGESTERONE [Suspect]
     Indication: IN VITRO FERTILISATION
     Dosage: DAILY SUBCUTANEOUS DAILY DOSE
     Route: 058
  8. PRENATAL VITAMINS (PRENATAL VITAMINS) [Concomitant]

REACTIONS (1)
  - DEEP VEIN THROMBOSIS [None]
